FAERS Safety Report 18690931 (Version 2)
Quarter: 2021Q1

REPORT INFORMATION
  Report Type: Spontaneous
  Country: JP (occurrence: JP)
  Receive Date: 20210101
  Receipt Date: 20210121
  Transmission Date: 20210419
  Serious: Yes (Hospitalization)
  Sender: FDA-Public Use
  Company Number: JP-ASTRAZENECA-2020SF74451

PATIENT
  Age: 54 Year
  Sex: Male

DRUGS (1)
  1. FASENRA [Suspect]
     Active Substance: BENRALIZUMAB
     Indication: ASTHMA
     Route: 058
     Dates: start: 20201012

REACTIONS (2)
  - Eosinophilic granulomatosis with polyangiitis [Unknown]
  - Facial paralysis [Unknown]

NARRATIVE: CASE EVENT DATE: 20201220
